FAERS Safety Report 12890142 (Version 2)
Quarter: 2016Q4

REPORT INFORMATION
  Report Type: Spontaneous
  Country: CA (occurrence: CA)
  Receive Date: 20161027
  Receipt Date: 20161108
  Transmission Date: 20170207
  Serious: Yes (Other)
  Sender: FDA-Public Use
  Company Number: CA-PURDUE PHARMA-CAN-2016-0007140

PATIENT
  Age: 14 Year
  Sex: Male
  Weight: 82 kg

DRUGS (5)
  1. BIPHENTIN [Suspect]
     Active Substance: METHYLPHENIDATE
     Dosage: 40 MG, DAILY
     Route: 048
     Dates: start: 20141223, end: 20161006
  2. BIPHENTIN [Suspect]
     Active Substance: METHYLPHENIDATE
     Dosage: 50 MG, DAILY
     Route: 048
     Dates: start: 20161007, end: 20161014
  3. BIPHENTIN [Suspect]
     Active Substance: METHYLPHENIDATE
     Dosage: 30 MG, DAILY
     Route: 048
     Dates: start: 2014
  4. BIPHENTIN [Suspect]
     Active Substance: METHYLPHENIDATE
     Dosage: 25 MG, DAILY
     Route: 048
     Dates: start: 2013
  5. BIPHENTIN [Suspect]
     Active Substance: METHYLPHENIDATE
     Indication: ATTENTION DEFICIT/HYPERACTIVITY DISORDER
     Dosage: 15 MG, DAILY
     Route: 065
     Dates: start: 2012

REACTIONS (2)
  - Hypoaesthesia [Recovered/Resolved]
  - Paraesthesia [Recovered/Resolved]

NARRATIVE: CASE EVENT DATE: 20161008
